FAERS Safety Report 4770964-5 (Version None)
Quarter: 2005Q3

REPORT INFORMATION
  Report Type: 
  Country: None (occurrence: None)
  Receive Date: 20050915
  Receipt Date: 20050909
  Transmission Date: 20060218
  Serious: Yes (Hospitalization, Other)
  Sender: FDA-Public Use
  Company Number: FR-BRISTOL-MYERS SQUIBB COMPANY-13105929

PATIENT
  Age: 30 Year
  Sex: Male

DRUGS (5)
  1. SUSTIVA [Suspect]
     Indication: HIV INFECTION
     Route: 048
  2. VIDEX EC [Suspect]
     Indication: HIV INFECTION
     Route: 048
  3. COMBIVIR [Suspect]
     Indication: HIV INFECTION
     Dosage: 300/150 MG
     Route: 048
  4. KALETRA [Suspect]
     Indication: HIV INFECTION
     Route: 048
  5. ZIAGEN [Suspect]
     Indication: HIV INFECTION
     Route: 048

REACTIONS (2)
  - DRUG RESISTANCE [None]
  - SCHIZOPHRENIFORM DISORDER [None]
